FAERS Safety Report 6083476-6 (Version None)
Quarter: 2009Q1

REPORT INFORMATION
  Report Type: 
  Country: None (occurrence: None)
  Receive Date: 20090213
  Receipt Date: 20090213
  Transmission Date: 20090719
  Serious: Yes (Hospitalization)
  Sender: FDA-Public Use
  Company Number: None

PATIENT
  Age: 68 Year
  Sex: Female
  Weight: 40.8237 kg

DRUGS (2)
  1. SORAFENIB-BAYER CORPORATION (XELODA-FORMULARY) [Suspect]
     Dosage: 200MG EVERY 12 HOURS PO
     Route: 048
  2. OXALIPLATIN [Suspect]
     Dosage: 92MG DAY 1, DAY 15 IV
     Route: 042

REACTIONS (6)
  - ABDOMINAL PAIN [None]
  - DIARRHOEA [None]
  - HYPERHIDROSIS [None]
  - LIVER FUNCTION TEST ABNORMAL [None]
  - NAUSEA [None]
  - PERFORMANCE STATUS DECREASED [None]
